FAERS Safety Report 5021200-6 (Version None)
Quarter: 2006Q2

REPORT INFORMATION
  Report Type: 
  Country: None (occurrence: None)
  Receive Date: 20060425
  Receipt Date: 20050310
  Transmission Date: 20061013
  Serious: No
  Sender: FDA-Public Use
  Company Number: WAES 0503USA01680

PATIENT
  Age: 8 Year
  Sex: Female
  Weight: 22.6799 kg

DRUGS (9)
  1. SINGULAIR [Suspect]
     Indication: ASTHMA
     Dosage: 5 MG HS PO
     Route: 048
     Dates: start: 20050216, end: 20050312
  2. SINGULAIR [Suspect]
     Indication: RHINITIS ALLERGIC
     Dosage: 5 MG HS PO
     Route: 048
     Dates: start: 20050216, end: 20050312
  3. ADVAIR DISKUS 100/50 [Concomitant]
  4. ASTELIN [Concomitant]
  5. ORAPRED [Concomitant]
  6. PHENERGAN EXPECTORANT W/ CODEINE [Concomitant]
  7. XOPENEX [Concomitant]
  8. ZYRTEC [Concomitant]
  9. ALBUTEROL SPIROS [Concomitant]

REACTIONS (3)
  - AGITATION [None]
  - INSOMNIA [None]
  - PSYCHOMOTOR HYPERACTIVITY [None]
